FAERS Safety Report 7617369-7 (Version None)
Quarter: 2011Q3

REPORT INFORMATION
  Report Type: 
  Country: None (occurrence: None)
  Receive Date: 20110718
  Receipt Date: 20110713
  Transmission Date: 20111222
  Serious: No
  Sender: FDA-Public Use
  Company Number: US-PFIZER INC-2011159295

PATIENT
  Sex: Female
  Weight: 54.422 kg

DRUGS (2)
  1. SERTRALINE HYDROCHLORIDE [Suspect]
     Indication: DEPRESSION
     Dosage: 50 MG, 1X/DAY
     Route: 048
     Dates: start: 20110401
  2. IRON [Concomitant]
     Indication: ANAEMIA
     Dosage: UNK

REACTIONS (1)
  - DRUG INEFFECTIVE [None]
